FAERS Safety Report 19837080 (Version 2)
Quarter: 2021Q4

REPORT INFORMATION
  Report Type: Report from Study
  Country: US (occurrence: None)
  Receive Date: 20210916
  Receipt Date: 20211220
  Transmission Date: 20220304
  Serious: Yes (Other)
  Sender: FDA-Public Use
  Company Number: US-ROCHE-2908986

PATIENT
  Age: 87 Year
  Sex: Female

DRUGS (1)
  1. BEVACIZUMAB [Suspect]
     Active Substance: BEVACIZUMAB
     Indication: Ovarian cancer
     Route: 065

REACTIONS (4)
  - Peripheral motor neuropathy [Unknown]
  - Syncope [Unknown]
  - Lymphocyte count decreased [Unknown]
  - Fatigue [Unknown]
